FAERS Safety Report 12847493 (Version 1)
Quarter: 2016Q4

REPORT INFORMATION
  Report Type: Spontaneous
  Country: US (occurrence: US)
  Receive Date: 20161014
  Receipt Date: 20161014
  Transmission Date: 20170207
  Serious: Yes (Other)
  Sender: FDA-Public Use
  Company Number: US-BELCHER PHARMACEUTICALS, LLC-2016VTS00161

PATIENT
  Sex: Female
  Weight: 61.22 kg

DRUGS (3)
  1. HYOSCYAMINE SULFATE SL [Suspect]
     Active Substance: HYOSCYAMINE SULFATE
     Indication: CROHN^S DISEASE
     Dosage: 2 TABLETS, 3X/DAY
     Route: 060
     Dates: start: 20160608, end: 2016
  2. HUMIRA [Suspect]
     Active Substance: ADALIMUMAB
  3. UNSPECIFIED MEDICATIONS [Concomitant]
     Active Substance: UNSPECIFIED INGREDIENT

REACTIONS (7)
  - Asthenia [Recovered/Resolved]
  - Hallucination [Recovered/Resolved]
  - Hallucination, visual [None]
  - Mydriasis [Recovered/Resolved]
  - Somnolence [Recovered/Resolved]
  - Dysarthria [Recovered/Resolved]
  - Dizziness [Recovered/Resolved]

NARRATIVE: CASE EVENT DATE: 2016
